FAERS Safety Report 25931310 (Version 1)
Quarter: 2025Q4

REPORT INFORMATION
  Report Type: Spontaneous
  Country: CN (occurrence: CN)
  Receive Date: 20251016
  Receipt Date: 20251016
  Transmission Date: 20260117
  Serious: Yes (Hospitalization)
  Sender: PFIZER
  Company Number: CN-PFIZER INC-PV202500120806

PATIENT
  Age: 77 Year
  Sex: Female

DRUGS (1)
  1. LORLATINIB [Suspect]
     Active Substance: LORLATINIB
     Indication: Lung neoplasm malignant
     Dosage: 100 MG, 1X/DAY
     Route: 048
     Dates: start: 20250109

REACTIONS (4)
  - Cardiotoxicity [Not Recovered/Not Resolved]
  - Cardiomyopathy [Not Recovered/Not Resolved]
  - Cardiac failure [Not Recovered/Not Resolved]
  - Atrial fibrillation [Not Recovered/Not Resolved]

NARRATIVE: CASE EVENT DATE: 20251004
